FAERS Safety Report 5339144-9 (Version None)
Quarter: 2007Q2

REPORT INFORMATION
  Report Type: 
  Country: None (occurrence: None)
  Receive Date: 20070530
  Receipt Date: 20070523
  Transmission Date: 20071010
  Serious: No
  Sender: FDA-Public Use
  Company Number: JP-ROXANE LABORATORIES, INC-2007-DE-01507GD

PATIENT
  Age: 65 Year
  Sex: Female

DRUGS (3)
  1. BUSCOPAN [Suspect]
     Indication: PREMEDICATION
     Route: 030
  2. BUSCOPAN [Suspect]
     Indication: ENDOSCOPY UPPER GASTROINTESTINAL TRACT
  3. LIDOCAINE [Suspect]
     Indication: ENDOSCOPY UPPER GASTROINTESTINAL TRACT
     Dosage: 8% TOPICAL PHARYNGEAL LIDOCAINE SPRAY

REACTIONS (1)
  - GLOBAL AMNESIA [None]
